FAERS Safety Report 15725023 (Version 1)
Quarter: 2018Q4

REPORT INFORMATION
  Report Type: Report from Study
  Country: CA (occurrence: CA)
  Receive Date: 20181214
  Receipt Date: 20181214
  Transmission Date: 20190205
  Serious: Yes (Death)
  Sender: FDA-Public Use
  Company Number: CA-HLSUS-2018-CA-001907

PATIENT
  Age: 58 Year
  Sex: Male

DRUGS (1)
  1. CLOZARIL [Suspect]
     Active Substance: CLOZAPINE
     Route: 048
     Dates: start: 19980717, end: 20181207

REACTIONS (2)
  - Death [Fatal]
  - Mental disorder [Unknown]

NARRATIVE: CASE EVENT DATE: 20181207
